FAERS Safety Report 9124032 (Version 3)
Quarter: 2013Q1

REPORT INFORMATION
  Report Type: Spontaneous
  Country: FR (occurrence: FR)
  Receive Date: 20130227
  Receipt Date: 20130312
  Transmission Date: 20140127
  Serious: Yes (Hospitalization, Other)
  Sender: FDA-Public Use
  Company Number: FR-PFIZER INC-2013070828

PATIENT
  Age: 79 Year
  Sex: Female

DRUGS (10)
  1. TRIATEC [Suspect]
     Indication: CARDIAC FAILURE
     Dosage: 1.25 MG, DAILY
     Route: 048
     Dates: start: 20130204, end: 20130206
  2. XARELTO [Suspect]
     Indication: ATRIAL FIBRILLATION
     Dosage: 20 MG, DAILY
     Route: 048
     Dates: start: 20130108, end: 20130206
  3. CORGARD [Concomitant]
     Indication: HYPERTENSION
     Dosage: 80 MG, DAILY
     Route: 048
     Dates: start: 20130121
  4. PREVISCAN [Concomitant]
     Dosage: UNK
     Dates: start: 20130102
  5. FLECAINE [Concomitant]
     Dosage: UNK
     Dates: end: 20130103
  6. ATENOLOL [Concomitant]
     Dosage: UNK
     Dates: end: 20130120
  7. SIMVASTATIN [Concomitant]
     Dosage: UNK
     Dates: end: 20130204
  8. TROSPIUM CHLORIDE [Concomitant]
     Dosage: UNK
     Dates: end: 20130204
  9. METFORMIN [Concomitant]
     Dosage: UNK
     Dates: end: 20130204
  10. VITAMIN K [Concomitant]
     Indication: INTERNATIONAL NORMALISED RATIO INCREASED
     Dosage: UNK
     Dates: start: 20121231

REACTIONS (8)
  - Gamma-glutamyltransferase increased [Recovered/Resolved]
  - Blood alkaline phosphatase increased [Recovered/Resolved]
  - Transaminases increased [Recovered/Resolved]
  - Biliary cyst [Unknown]
  - Diabetes mellitus [Unknown]
  - Urinary tract infection [Unknown]
  - Blood bilirubin increased [Recovering/Resolving]
  - Cell death [Unknown]
